FAERS Safety Report 4630346-3 (Version None)
Quarter: 2005Q2

REPORT INFORMATION
  Report Type: 
  Country: None (occurrence: None)
  Receive Date: 20050408
  Receipt Date: 20050329
  Transmission Date: 20051028
  Serious: Yes (Other)
  Sender: FDA-Public Use
  Company Number: US-BRISTOL-MYERS SQUIBB COMPANY-12914305

PATIENT
  Age: 8 Year
  Sex: Male

DRUGS (2)
  1. ABILIFY [Suspect]
     Indication: ABNORMAL BEHAVIOUR
  2. AMOXICILLIN [Concomitant]

REACTIONS (2)
  - MYOPIA [None]
  - VISUAL ACUITY REDUCED [None]
